FAERS Safety Report 19259039 (Version 2)
Quarter: 2021Q2

REPORT INFORMATION
  Report Type: Spontaneous
  Country: US (occurrence: US)
  Receive Date: 20210514
  Receipt Date: 20210517
  Transmission Date: 20210717
  Serious: Yes (Hospitalization)
  Sender: FDA-Public Use
  Company Number: US-MYLANLABS-2021M1028330

PATIENT
  Age: 4 Year
  Sex: Male

DRUGS (18)
  1. HYDROCORTISONE SODIUM SUCCINATE [Concomitant]
     Active Substance: HYDROCORTISONE SODIUM SUCCINATE
     Indication: ACUTE LYMPHOCYTIC LEUKAEMIA
     Route: 065
  2. DEXAMETHASONE. [Concomitant]
     Active Substance: DEXAMETHASONE
     Indication: ACUTE LYMPHOCYTIC LEUKAEMIA
     Route: 065
  3. METHYLPREDNISOLONE. [Concomitant]
     Active Substance: METHYLPREDNISOLONE
     Indication: ACUTE LYMPHOCYTIC LEUKAEMIA
     Route: 065
  4. DAUNORUBICIN HYDROCHLORIDE. [Concomitant]
     Active Substance: DAUNORUBICIN HYDROCHLORIDE
     Indication: ACUTE LYMPHOCYTIC LEUKAEMIA
     Route: 065
  5. ETOPOSIDE. [Concomitant]
     Active Substance: ETOPOSIDE
     Indication: ACUTE LYMPHOCYTIC LEUKAEMIA
     Route: 065
  6. VINCRISTINE SULFATE. [Concomitant]
     Active Substance: VINCRISTINE SULFATE
     Indication: ACUTE LYMPHOCYTIC LEUKAEMIA
     Route: 065
  7. METHOTREXATE. [Suspect]
     Active Substance: METHOTREXATE
     Indication: ACUTE LYMPHOCYTIC LEUKAEMIA
     Dosage: 5000 MILLIGRAM/SQ. METER OVER 24 HOURS
  8. CYCLOPHOSPHAMIDE. [Concomitant]
     Active Substance: CYCLOPHOSPHAMIDE
     Indication: ACUTE LYMPHOCYTIC LEUKAEMIA
     Route: 065
  9. DASATINIB. [Concomitant]
     Active Substance: DASATINIB
     Indication: ACUTE LYMPHOCYTIC LEUKAEMIA
     Route: 065
  10. IMATINIB. [Interacting]
     Active Substance: IMATINIB MESYLATE
     Indication: ACUTE LYMPHOCYTIC LEUKAEMIA
     Dosage: 340 MILLIGRAM/SQ. METER, QD
     Route: 065
  11. FILGRASTIM [Concomitant]
     Active Substance: FILGRASTIM
     Indication: ACUTE LYMPHOCYTIC LEUKAEMIA
     Route: 065
  12. PEGASPARGASE [Concomitant]
     Active Substance: PEGASPARGASE
     Indication: ACUTE LYMPHOCYTIC LEUKAEMIA
     Route: 065
  13. ASPARAGINASE [Concomitant]
     Active Substance: ASPARAGINASE
     Indication: ACUTE LYMPHOCYTIC LEUKAEMIA
     Route: 065
  14. LEUCOVORIN CALCIUM. [Concomitant]
     Active Substance: LEUCOVORIN CALCIUM
     Indication: ACUTE LYMPHOCYTIC LEUKAEMIA
     Route: 065
  15. PREDNISONE. [Concomitant]
     Active Substance: PREDNISONE
     Indication: ACUTE LYMPHOCYTIC LEUKAEMIA
     Route: 065
  16. CYTARABINE. [Concomitant]
     Active Substance: CYTARABINE
     Indication: ACUTE LYMPHOCYTIC LEUKAEMIA
     Route: 065
  17. IFOSFAMIDE. [Concomitant]
     Active Substance: IFOSFAMIDE
     Indication: ACUTE LYMPHOCYTIC LEUKAEMIA
     Route: 065
  18. MERCAPTOPURINE. [Concomitant]
     Active Substance: MERCAPTOPURINE
     Indication: ACUTE LYMPHOCYTIC LEUKAEMIA
     Route: 065

REACTIONS (8)
  - Drug interaction [Recovered/Resolved]
  - Thrombocytopenia [Recovered/Resolved]
  - Acute kidney injury [Recovered/Resolved]
  - Oedema peripheral [Recovered/Resolved]
  - Neutropenia [Recovered/Resolved]
  - Drug clearance decreased [Recovered/Resolved]
  - Toxicity to various agents [Recovered/Resolved]
  - Mucosal inflammation [Recovered/Resolved]
